FAERS Safety Report 7608688-9 (Version None)
Quarter: 2011Q3

REPORT INFORMATION
  Report Type: 
  Country: None (occurrence: None)
  Receive Date: 20110713
  Receipt Date: 20110713
  Transmission Date: 20111222
  Serious: Yes (Death)
  Sender: FDA-Public Use
  Company Number: None

PATIENT
  Age: 83 Year
  Sex: Female
  Weight: 107.0489 kg

DRUGS (1)
  1. QUETIAPINE [Suspect]
     Dosage: 12.5MG IV
     Route: 042
     Dates: start: 20110620, end: 20110620

REACTIONS (8)
  - NEUROLEPTIC MALIGNANT SYNDROME [None]
  - INFECTION [None]
  - POISONING [None]
  - PNEUMONIA [None]
  - RENAL FAILURE [None]
  - HYPOTENSION [None]
  - DYSKINESIA [None]
  - HEART RATE INCREASED [None]
